FAERS Safety Report 6550793-2 (Version None)
Quarter: 2010Q1

REPORT INFORMATION
  Report Type: 
  Country: None (occurrence: None)
  Receive Date: 20100125
  Receipt Date: 20100113
  Transmission Date: 20100710
  Serious: Yes (Hospitalization)
  Sender: FDA-Public Use
  Company Number: US-WATSON-2010-00481

PATIENT
  Age: 87 Year
  Sex: Female
  Weight: 43.084 kg

DRUGS (2)
  1. FENTANYL-75 [Suspect]
     Indication: SPINAL COLUMN STENOSIS
     Dosage: 1 PATCH, Q 3-4 DAYS
     Route: 062
     Dates: start: 20080101, end: 20100112
  2. ANESTHETICS, GENERAL [Suspect]
     Indication: GENERAL ANAESTHESIA
     Route: 065

REACTIONS (7)
  - ABNORMAL BEHAVIOUR [None]
  - CONFUSIONAL STATE [None]
  - DISORIENTATION [None]
  - DRUG INTERACTION [None]
  - INTESTINAL STRANGULATION [None]
  - IRRITABILITY [None]
  - MEDICATION ERROR [None]
